FAERS Safety Report 8616725-8 (Version None)
Quarter: 2012Q3

REPORT INFORMATION
  Report Type: 
  Country: None (occurrence: None)
  Receive Date: 20120823
  Receipt Date: 20120816
  Transmission Date: 20120928
  Serious: Yes (Other)
  Sender: FDA-Public Use
  Company Number: CHPA2012DE018430

PATIENT
  Age: 54 Year
  Sex: Female

DRUGS (4)
  1. IBUPROFEN [Suspect]
     Indication: PAIN
     Dosage: 6-7 TABLETS DAILY
     Route: 048
     Dates: start: 20120529, end: 20120808
  2. IBUPROFEN [Suspect]
     Indication: PAIN
     Dosage: 3-4 TABLETS DAILY
     Route: 048
     Dates: start: 20120529, end: 20120808
  3. TRAMADOL HYDROCHLORIDE [Suspect]
     Indication: PAIN
     Dosage: 3-4 CAPSULES DAILY
     Route: 048
     Dates: start: 20120529, end: 20120808
  4. ACETAMINOPHEN, ASPIRIN AND CAFFEINE [Suspect]
     Indication: PAIN
     Dosage: 5 TABLETS DAILY
     Route: 048
     Dates: start: 20120529, end: 20120808

REACTIONS (3)
  - DRUG ABUSE [None]
  - OVERDOSE [None]
  - DRUG ADMINISTRATION ERROR [None]
